FAERS Safety Report 9140740 (Version 1)
Quarter: 2013Q1

REPORT INFORMATION
  Report Type: Spontaneous
  Country: US (occurrence: None)
  Receive Date: 20130227
  Receipt Date: 20130227
  Transmission Date: 20140127
  Serious: Yes (Death)
  Sender: FDA-Public Use
  Company Number: AUR-APL-2013-00404

PATIENT
  Age: 31 Year
  Sex: Female

DRUGS (9)
  1. AMLODIPINE (AMLODIPINE) [Suspect]
     Indication: PRODUCT USED FOR UNKNOWN INDICATION
     Dosage: ORAL
     Route: 048
  2. LOSARTAN (LOSARTAN) [Suspect]
     Dosage: UNKNOWN
  3. RISPERIDONE (RISPERIDONE) [Suspect]
     Dosage: UNKNOWN
  4. SERTRALINE (SERTRALINE) (SERTRALINE) [Suspect]
     Dosage: UNKNOWN
  5. ZOLPIDEM (ZOLPIDEM) [Suspect]
     Dosage: UNKNOWN
  6. SALICYLATE (SALICYLATES NOS) [Suspect]
     Dosage: UNKNOWN
  7. METFORMIN / SITAGLIPTIN (METFORMIN AND SITAGLIPTIN) [Suspect]
     Dosage: UNKNOWN
  8. HYDROXYZINE (HYDROXYZINE) [Suspect]
     Dosage: UNKNOWN
  9. ROSUVASTATIN (ROSUVASTATIN) [Suspect]
     Dosage: UNKNOWN

REACTIONS (2)
  - Completed suicide [None]
  - Toxicity to various agents [None]
